FAERS Safety Report 8521892-0 (Version None)
Quarter: 2012Q3

REPORT INFORMATION
  Report Type: 
  Country: None (occurrence: None)
  Receive Date: 20120719
  Receipt Date: 20120709
  Transmission Date: 20120928
  Serious: Yes (Other)
  Sender: FDA-Public Use
  Company Number: US-PFIZER INC-2012164691

PATIENT
  Sex: Female
  Weight: 60.317 kg

DRUGS (3)
  1. ROBITUSSIN PEAK COLD COUGH PLUS CHEST CONGESTION DM [Suspect]
     Indication: COUGH
     Dosage: UNK, 2X/DAY
     Route: 048
     Dates: start: 20120706, end: 20120707
  2. TYLENOL [Concomitant]
     Dosage: UNK
  3. SIMVASTATIN [Concomitant]
     Indication: BLOOD CHOLESTEROL INCREASED
     Dosage: UNK

REACTIONS (2)
  - DIZZINESS [None]
  - SYNCOPE [None]
